FAERS Safety Report 25337538 (Version 1)
Quarter: 2025Q2

REPORT INFORMATION
  Report Type: Spontaneous
  Country: US (occurrence: US)
  Receive Date: 20250520
  Receipt Date: 20250520
  Transmission Date: 20250716
  Serious: No
  Sender: MERCK SHARP & DOHME LLC
  Company Number: US-009507513-2282369

PATIENT
  Sex: Female

DRUGS (2)
  1. SITAGLIPTIN PHOSPHATE [Suspect]
     Active Substance: SITAGLIPTIN PHOSPHATE
     Indication: Type 2 diabetes mellitus
     Dosage: 100MG ONCE A DAY
     Route: 048
  2. METAGLIP [Suspect]
     Active Substance: GLIPIZIDE\METFORMIN HYDROCHLORIDE
     Dosage: 2.5MG/500MG TWICE A DAY

REACTIONS (9)
  - Confusional state [Not Recovered/Not Resolved]
  - Product dose omission issue [Unknown]
  - Insurance issue [Unknown]
  - Feeling jittery [Not Recovered/Not Resolved]
  - Asthenia [Not Recovered/Not Resolved]
  - Paraesthesia [Not Recovered/Not Resolved]
  - Somnolence [Not Recovered/Not Resolved]
  - Vision blurred [Not Recovered/Not Resolved]
  - Erythema [Not Recovered/Not Resolved]
